FAERS Safety Report 13068325 (Version 1)
Quarter: 2016Q4

REPORT INFORMATION
  Report Type: Spontaneous
  Country: US (occurrence: US)
  Receive Date: 20161228
  Receipt Date: 20161228
  Transmission Date: 20170207
  Serious: No
  Sender: FDA-Public Use
  Company Number: US-JNJFOC-20161210298

PATIENT
  Age: 74 Year
  Sex: Female
  Weight: 45.36 kg

DRUGS (6)
  1. PEPCID AC MAXIMUM STRENGTH [Suspect]
     Active Substance: FAMOTIDINE
     Indication: GASTROINTESTINAL INFLAMMATION
     Dosage: 1/2 TABLET OF 20 MG
     Route: 048
     Dates: start: 20161208, end: 20161209
  2. WARFARIN [Concomitant]
     Active Substance: WARFARIN
     Indication: ANTICOAGULANT THERAPY
     Route: 065
  3. PEPCID AC MAXIMUM STRENGTH [Suspect]
     Active Substance: FAMOTIDINE
     Indication: FLATULENCE
     Dosage: 1/2 TABLET OF 20 MG
     Route: 048
     Dates: start: 20161208, end: 20161209
  4. SYNTHROID [Concomitant]
     Active Substance: LEVOTHYROXINE SODIUM
     Indication: HYPOTHYROIDISM
     Dosage: 17 YEARS
     Route: 065
  5. METOPROLOL. [Concomitant]
     Active Substance: METOPROLOL
     Indication: HYPERTENSION
     Dosage: 17 YEARS
     Route: 065
  6. PEPCID AC MAXIMUM STRENGTH [Suspect]
     Active Substance: FAMOTIDINE
     Indication: GASTRITIS
     Dosage: 1/2 TABLET OF 20 MG
     Route: 048
     Dates: start: 20161208, end: 20161209

REACTIONS (2)
  - International normalised ratio increased [Not Recovered/Not Resolved]
  - Product use issue [Not Recovered/Not Resolved]

NARRATIVE: CASE EVENT DATE: 20161208
